FAERS Safety Report 7295332-6 (Version None)
Quarter: 2011Q1

REPORT INFORMATION
  Report Type: 
  Country: None (occurrence: None)
  Receive Date: 20110211
  Receipt Date: 20110211
  Transmission Date: 20110831
  Serious: Yes (Disabling)
  Sender: FDA-Public Use
  Company Number: None

PATIENT
  Sex: Female
  Weight: 55.9 kg

DRUGS (5)
  1. PAXIL [Suspect]
     Indication: ANXIETY
     Dosage: 40MG DAILY PER MOUTH
     Route: 048
     Dates: start: 20100824, end: 20110101
  2. PAXIL [Suspect]
     Indication: DEPRESSION
     Dosage: 40MG DAILY PER MOUTH
     Route: 048
     Dates: start: 20100824, end: 20110101
  3. SINEMET [Concomitant]
  4. TEMAZEPAM [Concomitant]
  5. ATENOLOL [Concomitant]

REACTIONS (8)
  - MUSCLE RIGIDITY [None]
  - MOBILITY DECREASED [None]
  - BRADYKINESIA [None]
  - DYSPHAGIA [None]
  - WHEELCHAIR USER [None]
  - WEIGHT DECREASED [None]
  - DYSGEUSIA [None]
  - APHASIA [None]
